FAERS Safety Report 22097579 (Version 3)
Quarter: 2023Q2

REPORT INFORMATION
  Report Type: Spontaneous
  Country: US (occurrence: US)
  Receive Date: 20230315
  Receipt Date: 20230519
  Transmission Date: 20230721
  Serious: No
  Sender: FDA-Public Use
  Company Number: US-BEH-2023156226

PATIENT
  Age: 80 Year
  Sex: Male

DRUGS (2)
  1. HIZENTRA [Suspect]
     Active Substance: HUMAN IMMUNOGLOBULIN G
     Indication: Immunodeficiency common variable
     Dosage: 8 GRAM, QW
     Route: 058
     Dates: start: 20230301
  2. HIZENTRA [Suspect]
     Active Substance: HUMAN IMMUNOGLOBULIN G
     Dosage: 8 GRAM, QW
     Route: 065
     Dates: start: 202303

REACTIONS (10)
  - Fatigue [Unknown]
  - Chills [Unknown]
  - Musculoskeletal stiffness [Unknown]
  - Headache [Unknown]
  - Lymphadenopathy [Unknown]
  - Chest pain [Unknown]
  - Lymph nodes scan abnormal [Unknown]
  - Musculoskeletal chest pain [Unknown]
  - No adverse event [Unknown]
  - Product dose omission issue [Unknown]

NARRATIVE: CASE EVENT DATE: 20230301
